FAERS Safety Report 4744209-6 (Version None)
Quarter: 2005Q3

REPORT INFORMATION
  Report Type: 
  Country: None (occurrence: None)
  Receive Date: 20050809
  Receipt Date: 20050728
  Transmission Date: 20060218
  Serious: Yes (Hospitalization)
  Sender: FDA-Public Use
  Company Number: ST-2005-008513

PATIENT
  Age: 80 Year
  Sex: Female
  Weight: 43.8 kg

DRUGS (8)
  1. OLMETEC [Suspect]
     Indication: HYPERTENSION
     Dosage: 20 MG QD PO
     Route: 048
     Dates: start: 20050624, end: 20050702
  2. ASPIRIN [Concomitant]
  3. NORVASC [Concomitant]
  4. PRAVASTATIN [Concomitant]
  5. ALESION [Concomitant]
  6. DAONIL [Concomitant]
  7. ANTUP [Concomitant]
  8. BASEN [Concomitant]

REACTIONS (3)
  - GASTRIC ULCER HAEMORRHAGE [None]
  - HAEMATOCRIT DECREASED [None]
  - HAEMOGLOBIN DECREASED [None]
